FAERS Safety Report 9807123 (Version 2)
Quarter: 2014Q1

REPORT INFORMATION
  Report Type: Report from Study
  Country: US (occurrence: US)
  Receive Date: 20140110
  Receipt Date: 20140110
  Transmission Date: 20141002
  Serious: Yes (Hospitalization, Other)
  Sender: FDA-Public Use
  Company Number: US-ROCHE-1285348

PATIENT
  Age: 87 Year
  Sex: Female
  Weight: 74.46 kg

DRUGS (4)
  1. XELODA [Suspect]
     Indication: COLON CANCER STAGE IV
     Route: 048
     Dates: start: 20130715
  2. XELODA [Suspect]
     Indication: COLON CANCER
     Route: 048
     Dates: start: 20130801, end: 20140105
  3. PLAVIX [Concomitant]
     Indication: ANTICOAGULANT THERAPY
  4. LIPITOR [Concomitant]

REACTIONS (10)
  - Cerebrovascular accident [Recovering/Resolving]
  - Speech disorder [Not Recovered/Not Resolved]
  - Gait disturbance [Not Recovered/Not Resolved]
  - Constipation [Not Recovered/Not Resolved]
  - Joint swelling [Not Recovered/Not Resolved]
  - Local swelling [Not Recovered/Not Resolved]
  - Decreased appetite [Not Recovered/Not Resolved]
  - Abdominal pain upper [Not Recovered/Not Resolved]
  - Nausea [Not Recovered/Not Resolved]
  - Retching [Not Recovered/Not Resolved]
